FAERS Safety Report 4781181-7 (Version None)
Quarter: 2005Q3

REPORT INFORMATION
  Report Type: 
  Country: None (occurrence: None)
  Receive Date: 20050928
  Receipt Date: 20050922
  Transmission Date: 20060218
  Serious: Yes (Other)
  Sender: FDA-Public Use
  Company Number: 2005UW14275

PATIENT
  Age: 52 Year
  Sex: Female

DRUGS (2)
  1. SEROQUEL [Suspect]
     Route: 048
  2. DEXEDRINE [Concomitant]

REACTIONS (5)
  - DYSARTHRIA [None]
  - PRURITUS [None]
  - RASH ERYTHEMATOUS [None]
  - SOMNOLENCE [None]
  - URTICARIA [None]
